FAERS Safety Report 8020756-9 (Version None)
Quarter: 2012Q1

REPORT INFORMATION
  Report Type: 
  Country: None (occurrence: None)
  Receive Date: 20120104
  Receipt Date: 20111228
  Transmission Date: 20120608
  Serious: Yes (Death, Hospitalization)
  Sender: FDA-Public Use
  Company Number: US-BIOGENIDEC-2011BI040206

PATIENT
  Age: 73 Year
  Sex: Female

DRUGS (3)
  1. AVONEX [Suspect]
     Indication: MULTIPLE SCLEROSIS
     Route: 030
     Dates: start: 20000101, end: 20031001
  2. AVONEX [Suspect]
     Route: 030
     Dates: start: 20091001
  3. AVONEX [Suspect]
     Route: 030
     Dates: start: 20040401, end: 20080301

REACTIONS (4)
  - PNEUMONIA [None]
  - INTESTINAL PROLAPSE [None]
  - INFECTION [None]
  - MULTIPLE SCLEROSIS [None]
